FAERS Safety Report 24924575 (Version 1)
Quarter: 2025Q1

REPORT INFORMATION
  Report Type: Spontaneous
  Country: RU (occurrence: RU)
  Receive Date: 20250204
  Receipt Date: 20250204
  Transmission Date: 20250409
  Serious: No
  Sender: EXELIXIS
  Company Number: RU-IPSEN Group, Research and Development-2024-04112

PATIENT
  Age: 67 Year
  Sex: Female

DRUGS (1)
  1. CABOMETYX [Suspect]
     Active Substance: CABOZANTINIB S-MALATE
     Indication: Metastatic renal cell carcinoma
     Route: 065
     Dates: start: 202308

REACTIONS (4)
  - Blood pressure increased [Unknown]
  - Asthenia [Unknown]
  - Stomatitis [Unknown]
  - Nausea [Unknown]
